FAERS Safety Report 5336596-5 (Version None)
Quarter: 2007Q2

REPORT INFORMATION
  Report Type: 
  Country: None (occurrence: None)
  Receive Date: 20070529
  Receipt Date: 20070516
  Transmission Date: 20071010
  Serious: Yes (Other)
  Sender: FDA-Public Use
  Company Number: US-AMGEN-US224938

PATIENT
  Sex: Male

DRUGS (6)
  1. ARANESP [Suspect]
     Indication: ANAEMIA OF MALIGNANT DISEASE
  2. NEULASTA [Suspect]
     Indication: CHEMOTHERAPY
  3. FLUOROURACIL [Concomitant]
  4. FOLINIC ACID [Concomitant]
  5. OXALIPLATIN [Concomitant]
  6. ZOCOR [Concomitant]

REACTIONS (1)
  - SPLENIC INFARCTION [None]
